FAERS Safety Report 25066222 (Version 2)
Quarter: 2025Q1

REPORT INFORMATION
  Report Type: Spontaneous
  Country: US (occurrence: US)
  Receive Date: 20250312
  Receipt Date: 20250319
  Transmission Date: 20250409
  Serious: No
  Sender: SANDOZ
  Company Number: US-002147023-NVSC2025US040007

PATIENT
  Age: 68 Year
  Sex: Female
  Weight: 69.8 kg

DRUGS (4)
  1. AZITHROMYCIN [Suspect]
     Active Substance: AZITHROMYCIN
     Dosage: 250 MG, QD
     Route: 048
     Dates: start: 20250108
  2. AZITHROMYCIN [Suspect]
     Active Substance: AZITHROMYCIN
     Indication: Mycobacterium abscessus infection
     Dosage: 250 MG, QD, DATE DOSE LAST TAKEN PRIOR TO AE
     Route: 048
     Dates: start: 20250210
  3. CLOFAZIMINE [Suspect]
     Active Substance: CLOFAZIMINE
     Indication: Mycobacterium abscessus infection
     Dosage: 100 MG, QD
     Route: 048
     Dates: start: 20250109
  4. CLOFAZIMINE [Suspect]
     Active Substance: CLOFAZIMINE
     Route: 048
     Dates: start: 20250210

REACTIONS (7)
  - Diarrhoea [Not Recovered/Not Resolved]
  - Concomitant disease aggravated [Not Recovered/Not Resolved]
  - Haemophilus infection [Not Recovered/Not Resolved]
  - Sputum increased [Not Recovered/Not Resolved]
  - Pain [Not Recovered/Not Resolved]
  - Cough [Not Recovered/Not Resolved]
  - Fatigue [Not Recovered/Not Resolved]

NARRATIVE: CASE EVENT DATE: 20250210
